FAERS Safety Report 25220014 (Version 1)
Quarter: 2025Q2

REPORT INFORMATION
  Report Type: Spontaneous
  Country: US (occurrence: US)
  Receive Date: 20250421
  Receipt Date: 20250421
  Transmission Date: 20250717
  Serious: No
  Sender: BAYER HEALTHCARE PHARMACEUTICALS INC.
  Company Number: US-BAYER-2025A050556

PATIENT
  Age: 89 Year
  Sex: Male

DRUGS (1)
  1. NUBEQA [Suspect]
     Active Substance: DAROLUTAMIDE
     Dates: start: 20250410

REACTIONS (2)
  - Myalgia [None]
  - Muscular weakness [None]

NARRATIVE: CASE EVENT DATE: 20250411
